FAERS Safety Report 17087385 (Version 1)
Quarter: 2019Q4

REPORT INFORMATION
  Report Type: Spontaneous
  Country: NL (occurrence: NL)
  Receive Date: 20191128
  Receipt Date: 20191128
  Transmission Date: 20200122
  Serious: Yes (Other)
  Sender: FDA-Public Use
  Company Number: NL-TEVA-2018-NL-927306

PATIENT
  Age: 29 Year
  Sex: Female
  Weight: 83 kg

DRUGS (1)
  1. NITROFURANTOINE CAPSULE, 100 MG (MILLIGRAM) [Suspect]
     Active Substance: NITROFURANTOIN
     Indication: CYSTITIS
     Dosage: 4X PER DAY, 100 MG PER 6 HRS
     Route: 065
     Dates: start: 20171212, end: 20171218

REACTIONS (2)
  - Pruritus [Recovered/Resolved]
  - Syncope [Recovered/Resolved]

NARRATIVE: CASE EVENT DATE: 20171220
